FAERS Safety Report 9914579 (Version 1)
Quarter: 2014Q1

REPORT INFORMATION
  Report Type: Spontaneous
  Country: FR (occurrence: FR)
  Receive Date: 20140220
  Receipt Date: 20140220
  Transmission Date: 20141002
  Serious: Yes (Death, Hospitalization)
  Sender: FDA-Public Use
  Company Number: FR-PFIZER INC-2014047918

PATIENT
  Age: 85 Year
  Sex: Female

DRUGS (8)
  1. CORDARONE [Suspect]
     Dosage: 200 MG AT 5 DAY A WEEK
     Route: 048
     Dates: start: 201310, end: 20140120
  2. TAHOR [Suspect]
     Dosage: 10 MG, DAILY
     Route: 048
     Dates: end: 20140120
  3. FLUDEX [Concomitant]
     Dosage: UNK
     Dates: end: 20140120
  4. FOSAMAX [Concomitant]
     Dosage: UNK
     Dates: end: 20140120
  5. LEVOTHYROX [Concomitant]
     Dosage: UNK
     Dates: end: 20140120
  6. KARDEGIC [Concomitant]
     Dosage: UNK
     Dates: end: 20140120
  7. OROCAL [Concomitant]
     Dosage: UNK
     Dates: end: 20140120
  8. KALEORID [Concomitant]
     Dosage: UNK
     Dates: end: 20140120

REACTIONS (1)
  - Interstitial lung disease [Fatal]
